FAERS Safety Report 5567397-0 (Version None)
Quarter: 2007Q4

REPORT INFORMATION
  Report Type: 
  Country: None (occurrence: None)
  Receive Date: 20071214
  Receipt Date: 20071128
  Transmission Date: 20080405
  Serious: Yes (Other)
  Sender: FDA-Public Use
  Company Number: VER_00091_2007

PATIENT
  Age: 52 Year
  Sex: Female

DRUGS (2)
  1. EPINEPHRINE [Suspect]
     Indication: HYPERSENSITIVITY
     Dosage: (0.3 MG INTRAMUSCULAR)
     Route: 030
     Dates: start: 20071123
  2. EPIPEN [Suspect]
     Indication: HYPERSENSITIVITY
     Dosage: (0.3 MG)

REACTIONS (10)
  - ACCIDENTAL NEEDLE STICK [None]
  - DEVICE MALFUNCTION [None]
  - GENITAL SWELLING [None]
  - HYPERSENSITIVITY [None]
  - INJECTION SITE PALLOR [None]
  - NO THERAPEUTIC RESPONSE [None]
  - OEDEMA PERIPHERAL [None]
  - PAIN IN EXTREMITY [None]
  - PHARMACEUTICAL PRODUCT COMPLAINT [None]
  - REFUSAL OF TREATMENT BY PATIENT [None]
